FAERS Safety Report 8363712-3 (Version None)
Quarter: 2012Q2

REPORT INFORMATION
  Report Type: 
  Country: None (occurrence: None)
  Receive Date: 20120516
  Receipt Date: 20120507
  Transmission Date: 20120825
  Serious: Yes (Other)
  Sender: FDA-Public Use
  Company Number: JP-PFIZER INC-2012101255

PATIENT
  Age: 60 Year
  Sex: Female

DRUGS (4)
  1. BONALEN(ALENDRONATE SODIUM) [Concomitant]
     Dosage: UNK
     Route: 048
     Dates: start: 20091001
  2. CELEBREX [Suspect]
     Dosage: 100 MG, UNK
     Route: 048
     Dates: start: 20091001
  3. RHEUMATREX [Concomitant]
     Dosage: UNK
     Route: 048
     Dates: start: 20091001
  4. KETOPROFEN [Concomitant]
     Dosage: UNK, TAPE
     Dates: start: 20091001

REACTIONS (2)
  - BREAST SWELLING [None]
  - NIPPLE EXUDATE BLOODY [None]
